FAERS Safety Report 13511488 (Version 1)
Quarter: 2017Q2

REPORT INFORMATION
  Report Type: Report from Study
  Country: PL (occurrence: PL)
  Receive Date: 20170504
  Receipt Date: 20170504
  Transmission Date: 20170830
  Serious: Yes (Other)
  Sender: FDA-Public Use
  Company Number: PL-CELGENEUS-POL-20170408632

PATIENT
  Sex: Male

DRUGS (1)
  1. AZACITIDINE. [Suspect]
     Active Substance: AZACITIDINE
     Indication: ACUTE MYELOID LEUKAEMIA
     Route: 065
     Dates: start: 20170331

REACTIONS (6)
  - Thrombocytopenia [Unknown]
  - Haemorrhagic disorder [Unknown]
  - Blood creatinine increased [Unknown]
  - Anaemia [Unknown]
  - Infection [Unknown]
  - Neutropenia [Unknown]
